FAERS Safety Report 8830683 (Version 5)
Quarter: 2014Q3

REPORT INFORMATION
  Report Type: Report from Study
  Country: GB (occurrence: GB)
  Receive Date: 20121009
  Receipt Date: 20140917
  Transmission Date: 20150326
  Serious: Yes (Hospitalization)
  Sender: FDA-Public Use
  Company Number: GB-CELGENEUS-167-21880-12093266

PATIENT
  Age: 84 Year
  Sex: Female

DRUGS (9)
  1. CYCLOPHOSPHAMIDE. [Suspect]
     Active Substance: CYCLOPHOSPHAMIDE
     Route: 048
     Dates: start: 20120824, end: 20120831
  2. DEXAMETHASONE. [Suspect]
     Active Substance: DEXAMETHASONE
     Route: 048
     Dates: end: 20121022
  3. DEXAMETHASONE. [Suspect]
     Active Substance: DEXAMETHASONE
     Route: 048
     Dates: end: 20121203
  4. CYCLOPHOSPHAMIDE. [Suspect]
     Active Substance: CYCLOPHOSPHAMIDE
     Indication: PLASMA CELL MYELOMA
     Route: 048
     Dates: end: 20121203
  5. CYCLOPHOSPHAMIDE. [Suspect]
     Active Substance: CYCLOPHOSPHAMIDE
     Route: 048
     Dates: end: 20121022
  6. REVLIMID [Suspect]
     Active Substance: LENALIDOMIDE
     Route: 048
     Dates: start: 20120824, end: 20120913
  7. REVLIMID [Suspect]
     Active Substance: LENALIDOMIDE
     Route: 048
     Dates: end: 20121203
  8. DEXAMETHASONE. [Suspect]
     Active Substance: DEXAMETHASONE
     Indication: PLASMA CELL MYELOMA
     Route: 048
     Dates: start: 20120824, end: 20120910
  9. REVLIMID [Suspect]
     Active Substance: LENALIDOMIDE
     Indication: PLASMA CELL MYELOMA
     Dosage: 10 MILLIGRAM
     Route: 048
     Dates: end: 20121022

REACTIONS (3)
  - Cellulitis [Recovered/Resolved with Sequelae]
  - Confusional state [Recovered/Resolved with Sequelae]
  - Confusional state [Recovered/Resolved]

NARRATIVE: CASE EVENT DATE: 20120915
